FAERS Safety Report 11494585 (Version 1)
Quarter: 2015Q3

REPORT INFORMATION
  Report Type: Spontaneous
  Country: US (occurrence: None)
  Receive Date: 20150910
  Receipt Date: 20150910
  Transmission Date: 20151125
  Serious: No
  Sender: FDA-Public Use
  Company Number: None

PATIENT
  Age: 93 Year
  Sex: Female
  Weight: 72.58 kg

DRUGS (1)
  1. DIOVAN [Suspect]
     Active Substance: VALSARTAN
     Indication: HYPERTENSION
     Dosage: 160/12H
     Route: 048
     Dates: start: 20150828, end: 20150906

REACTIONS (2)
  - Dehydration [None]
  - Dry mouth [None]

NARRATIVE: CASE EVENT DATE: 20150902
